FAERS Safety Report 25439774 (Version 1)
Quarter: 2025Q2

REPORT INFORMATION
  Report Type: Spontaneous
  Country: US (occurrence: None)
  Receive Date: 20250615
  Receipt Date: 20250615
  Transmission Date: 20250716
  Serious: Yes (Hospitalization)
  Sender: FDA-CTU
  Company Number: None

PATIENT
  Age: 47 Year
  Sex: Male
  Weight: 135 kg

DRUGS (1)
  1. TOPIRAMATE [Suspect]
     Active Substance: TOPIRAMATE
     Indication: Migraine
     Dosage: FREQUENCY : TWICE A DAY;?
     Route: 048
     Dates: start: 20250414, end: 20250606

REACTIONS (6)
  - Aphasia [None]
  - Headache [None]
  - Hemiplegia [None]
  - Dry mouth [None]
  - Blood pressure increased [None]
  - Muscle spasms [None]

NARRATIVE: CASE EVENT DATE: 20250426
